FAERS Safety Report 18873987 (Version 3)
Quarter: 2021Q4

REPORT INFORMATION
  Report Type: Spontaneous
  Country: IR (occurrence: IR)
  Receive Date: 20210210
  Receipt Date: 20211203
  Transmission Date: 20220303
  Serious: Yes (Hospitalization, Other)
  Sender: FDA-Public Use
  Company Number: IR-SUN PHARMACEUTICAL INDUSTRIES LTD-2021R1-279942

PATIENT
  Age: 17 Year
  Sex: Male

DRUGS (2)
  1. BOSENTAN [Suspect]
     Active Substance: BOSENTAN
     Indication: Pulmonary hypertension
     Dosage: 125 MILLIGRAM, DAILY
     Route: 065
  2. TADALAFIL [Concomitant]
     Active Substance: TADALAFIL
     Indication: Pulmonary hypertension
     Dosage: 20 MILLIGRAM, DAILY
     Route: 065

REACTIONS (1)
  - Haemolytic anaemia [Recovered/Resolved]
